FAERS Safety Report 5204528-6 (Version None)
Quarter: 2007Q1

REPORT INFORMATION
  Report Type: 
  Country: None (occurrence: None)
  Receive Date: 20070110
  Receipt Date: 20060427
  Transmission Date: 20070707
  Serious: No
  Sender: FDA-Public Use
  Company Number: US-BRISTOL-MYERS SQUIBB COMPANY-13360268

PATIENT
  Age: 31 Year
  Sex: Male

DRUGS (8)
  1. ABILIFY [Suspect]
     Indication: SCHIZOPHRENIA
  2. FLUVOXAMINE MALEATE [Concomitant]
     Indication: OBSESSIVE-COMPULSIVE DISORDER
     Dosage: DOSING: 150 EVERY MORNING + 150 EVERY NITE.
  3. LITHIUM CARBONATE [Concomitant]
     Indication: BIPOLAR DISORDER
     Dosage: DOSING: 300 MG TWICE MORNING + 3 AT NITE
  4. CONCERTA [Concomitant]
     Indication: ATTENTION DEFICIT/HYPERACTIVITY DISORDER
  5. TOPAMAX [Concomitant]
     Indication: BIPOLAR DISORDER
  6. ZYPREXA [Concomitant]
     Indication: BIPOLAR DISORDER
  7. LAMICTAL [Concomitant]
     Indication: BIPOLAR DISORDER
  8. XANAX [Concomitant]
     Indication: ANXIETY

REACTIONS (3)
  - PYREXIA [None]
  - TREMOR [None]
  - VOMITING [None]
